FAERS Safety Report 15005339 (Version 2)
Quarter: 2018Q3

REPORT INFORMATION
  Report Type: Report from Study
  Country: US (occurrence: US)
  Receive Date: 20180613
  Receipt Date: 20180709
  Transmission Date: 20181010
  Serious: Yes (Other)
  Sender: FDA-Public Use
  Company Number: US-JAZZ-2016-US-020977

PATIENT
  Sex: Female

DRUGS (54)
  1. XYREM [Suspect]
     Active Substance: SODIUM OXYBATE
     Indication: NARCOLEPSY
     Dosage: 4.5 G, BID
     Route: 048
     Dates: start: 200902, end: 2011
  2. ESTRACE [Concomitant]
     Active Substance: ESTRADIOL
  3. RECLAST [Concomitant]
     Active Substance: ZOLEDRONIC ACID
  4. TRIMETHOPRIM. [Concomitant]
     Active Substance: TRIMETHOPRIM
  5. ZOLOFT [Concomitant]
     Active Substance: SERTRALINE HYDROCHLORIDE
  6. MIRALAX [Concomitant]
     Active Substance: POLYETHYLENE GLYCOL 3350
  7. BETHANECHOL [Concomitant]
     Active Substance: BETHANECHOL
  8. CIPROFLOXACIN. [Concomitant]
     Active Substance: CIPROFLOXACIN
  9. DEXAMETHASONE ACETATE [Concomitant]
     Active Substance: DEXAMETHASONE ACETATE
  10. EXCEDRIN EXTRA STRENGTH [Concomitant]
     Active Substance: ACETAMINOPHEN\ASPIRIN\CAFFEINE
  11. MORPHINE SULF ER [Concomitant]
  12. TOPAMAX [Concomitant]
     Active Substance: TOPIRAMATE
  13. ZYRTEC?D [Concomitant]
     Active Substance: CETIRIZINE HYDROCHLORIDE\PSEUDOEPHEDRINE HYDROCHLORIDE
  14. CREON [Concomitant]
     Active Substance: PANCRELIPASE AMYLASE\PANCRELIPASE LIPASE\PANCRELIPASE PROTEASE
  15. RAPAFLO [Concomitant]
     Active Substance: SILODOSIN
  16. NASACORT ALLERGY 24HR [Concomitant]
     Active Substance: TRIAMCINOLONE ACETONIDE
  17. STOOL SOFTENER (DOCUSATE) [Concomitant]
     Active Substance: DOCUSATE
  18. PROMETHAZINE [Concomitant]
     Active Substance: PROMETHAZINE\PROMETHAZINE HYDROCHLORIDE
  19. RITALIN [Concomitant]
     Active Substance: METHYLPHENIDATE HYDROCHLORIDE
  20. FENTANYL. [Concomitant]
     Active Substance: FENTANYL
  21. SUMATRIPTAN. [Concomitant]
     Active Substance: SUMATRIPTAN
  22. IBUPROFEN IB [Concomitant]
     Active Substance: IBUPROFEN
  23. SYSTANE BALANCE [Concomitant]
     Active Substance: PROPYLENE GLYCOL
  24. ROCURONIUM [Concomitant]
     Active Substance: ROCURONIUM BROMIDE
  25. AROMASIN [Concomitant]
     Active Substance: EXEMESTANE
  26. CALCARB [Concomitant]
  27. SYNTHROID [Concomitant]
     Active Substance: LEVOTHYROXINE SODIUM
  28. PYRIDIUM [Concomitant]
     Active Substance: PHENAZOPYRIDINE
  29. MORPHINE SULFATE IR [Concomitant]
     Active Substance: MORPHINE SULFATE
  30. OMEPRAZOLE. [Concomitant]
     Active Substance: OMEPRAZOLE
  31. XYREM [Suspect]
     Active Substance: SODIUM OXYBATE
     Indication: CATAPLEXY
     Dosage: 4.5 G, BID
     Route: 048
     Dates: start: 201109
  32. ARIMIDEX [Concomitant]
     Active Substance: ANASTROZOLE
  33. MOMETASONE FUROATE. [Concomitant]
     Active Substance: MOMETASONE FUROATE
  34. MIDAZOLAM HCL [Concomitant]
     Active Substance: MIDAZOLAM HYDROCHLORIDE
  35. SUCCINYLCHOLIN NS [Concomitant]
  36. HYDROXYZINE HYDROCHLORIDE. [Concomitant]
     Active Substance: HYDROXYZINE HYDROCHLORIDE
  37. LIDOCAINE. [Concomitant]
     Active Substance: LIDOCAINE
  38. ONDANSETRON HCL [Concomitant]
     Active Substance: ONDANSETRON HYDROCHLORIDE
  39. FISH OIL CONCENTRATE [Concomitant]
     Active Substance: FISH OIL
  40. MAXALT [Concomitant]
     Active Substance: RIZATRIPTAN BENZOATE
  41. MODAFINIL. [Concomitant]
     Active Substance: MODAFINIL
  42. DEXAMETHASONE. [Concomitant]
     Active Substance: DEXAMETHASONE
  43. ONDANSETRON [Concomitant]
     Active Substance: ONDANSETRON
  44. RITALIN LA [Concomitant]
     Active Substance: METHYLPHENIDATE HYDROCHLORIDE
  45. AMBIEN D [Concomitant]
  46. METRONIDAZOLE. [Concomitant]
     Active Substance: METRONIDAZOLE
  47. ZYRTEC [Concomitant]
     Active Substance: CETIRIZINE HYDROCHLORIDE
  48. ELMIRON [Concomitant]
     Active Substance: PENTOSAN POLYSULFATE SODIUM
  49. PERCOCET [Concomitant]
     Active Substance: ACETAMINOPHEN\OXYCODONE HYDROCHLORIDE
  50. PROPOFOL. [Concomitant]
     Active Substance: PROPOFOL
  51. EFFEXOR XR [Concomitant]
     Active Substance: VENLAFAXINE HYDROCHLORIDE
  52. EVISTA [Concomitant]
     Active Substance: RALOXIFENE HYDROCHLORIDE
  53. MORPHINE SULF CR [Concomitant]
  54. SOMA [Concomitant]
     Active Substance: CARISOPRODOL

REACTIONS (3)
  - Confusional state [Not Recovered/Not Resolved]
  - Condition aggravated [Not Recovered/Not Resolved]
  - Visual impairment [Not Recovered/Not Resolved]
